FAERS Safety Report 9260643 (Version 1)
Quarter: 2013Q2

REPORT INFORMATION
  Report Type: Spontaneous
  Country: US (occurrence: US)
  Receive Date: 20130429
  Receipt Date: 20130429
  Transmission Date: 20140414
  Serious: No
  Sender: FDA-Public Use
  Company Number: US-PFIZER INC-2013130688

PATIENT
  Age: 35 Year
  Sex: Female
  Weight: 68.02 kg

DRUGS (1)
  1. ALAVERT [Suspect]
     Indication: COUGH
     Dosage: 10 MG, ONCE DAILY
     Route: 048
     Dates: start: 20130423, end: 20130424

REACTIONS (1)
  - Drug ineffective [Unknown]
